FAERS Safety Report 6616064-0 (Version None)
Quarter: 2010Q1

REPORT INFORMATION
  Report Type: 
  Country: None (occurrence: None)
  Receive Date: 20100305
  Receipt Date: 20100222
  Transmission Date: 20100710
  Serious: Yes (Other)
  Sender: FDA-Public Use
  Company Number: PHEH2008US08794

PATIENT
  Sex: Female

DRUGS (6)
  1. AREDIA [Suspect]
     Dosage: UNK
  2. ZOMETA [Suspect]
  3. FEMARA [Concomitant]
     Dosage: 2.5 MG, QD
     Route: 048
  4. PROTONIX [Concomitant]
  5. FEOSOL [Concomitant]
  6. HORMONES NOS [Concomitant]
     Dosage: UNK
     Dates: end: 20050501

REACTIONS (25)
  - ADENOMYOSIS [None]
  - ANHEDONIA [None]
  - ANXIETY [None]
  - BLOOD CHOLESTEROL INCREASED [None]
  - BONE DISORDER [None]
  - DISABILITY [None]
  - DIVERTICULUM [None]
  - EATING DISORDER [None]
  - FISTULA [None]
  - HYPERPLASTIC CHOLECYSTOPATHY [None]
  - HYPERTENSION [None]
  - INJURY [None]
  - LIVER DISORDER [None]
  - LYMPHADENOPATHY [None]
  - MAXILLOFACIAL OPERATION [None]
  - OSTEONECROSIS [None]
  - OSTEORADIONECROSIS [None]
  - PAIN [None]
  - RENAL CYST [None]
  - SINUSITIS [None]
  - SWELLING FACE [None]
  - TOOTH EXTRACTION [None]
  - URINARY TRACT INFECTION [None]
  - UTERINE MALPOSITION [None]
  - VENOUS THROMBOSIS [None]
